FAERS Safety Report 24150578 (Version 1)
Quarter: 2024Q3

REPORT INFORMATION
  Report Type: Spontaneous
  Country: BR (occurrence: BR)
  Receive Date: 20240730
  Receipt Date: 20240730
  Transmission Date: 20241016
  Serious: Yes (Death, Other)
  Sender: CHEPLAPHARM
  Company Number: BR-CHEPLA-2024009611

PATIENT
  Age: 58 Year
  Sex: Female

DRUGS (2)
  1. GANCICLOVIR [Suspect]
     Active Substance: GANCICLOVIR
     Indication: Cytomegalovirus infection
     Dosage: FOR 14 DAYS; BID?DAILY DOSE: 10 MILLIGRAM/KG
  2. METFORMIN [Concomitant]
     Active Substance: METFORMIN HYDROCHLORIDE
     Indication: Diabetes mellitus
     Dosage: DAILY DOSE: 1500 MILLIGRAM

REACTIONS (4)
  - Pneumonia [Fatal]
  - Acute pulmonary oedema [Unknown]
  - Cardio-respiratory arrest [Unknown]
  - Weaning failure [Unknown]
